FAERS Safety Report 4490439-0 (Version None)
Quarter: 2004Q4

REPORT INFORMATION
  Report Type: 
  Country: None (occurrence: None)
  Receive Date: 20041102
  Receipt Date: 20041008
  Transmission Date: 20050328
  Serious: Yes (Hospitalization)
  Sender: FDA-Public Use
  Company Number: PHBS2004JP13560

PATIENT
  Age: 66 Year
  Sex: Female

DRUGS (6)
  1. VOLTAREN [Suspect]
     Indication: BACK PAIN
     Dosage: 25 MG, ONCE/SINGLE
     Route: 054
     Dates: start: 20041005, end: 20041005
  2. METHAPHYLLIN [Concomitant]
     Indication: DUODENAL ULCER
     Dosage: 3 G/DAY
     Route: 048
     Dates: start: 20031120
  3. URSO [Concomitant]
     Indication: DUODENAL ULCER
     Dosage: 300 MG/DAY
     Route: 048
     Dates: start: 20031120
  4. NORVASC [Concomitant]
     Indication: HYPERTENSION
     Route: 048
     Dates: start: 20031120
  5. AMOBAN [Concomitant]
     Indication: HYPERTENSION
     Route: 048
     Dates: start: 20031120
  6. BAYASPIRIN [Concomitant]
     Indication: HYPERTENSION
     Route: 048
     Dates: start: 20031120

REACTIONS (10)
  - ANAPHYLACTIC SHOCK [None]
  - CHILLS [None]
  - COLD SWEAT [None]
  - ECZEMA [None]
  - FEELING ABNORMAL [None]
  - GENERALISED ERYTHEMA [None]
  - LOSS OF CONSCIOUSNESS [None]
  - OXYGEN SATURATION DECREASED [None]
  - VOMITING [None]
  - WHITE BLOOD CELL COUNT INCREASED [None]
